FAERS Safety Report 18308795 (Version 1)
Quarter: 2020Q3

REPORT INFORMATION
  Report Type: Spontaneous
  Country: US (occurrence: US)
  Receive Date: 20200924
  Receipt Date: 20200924
  Transmission Date: 20201103
  Serious: No
  Sender: FDA-Public Use
  Company Number: US-PFIZER INC-2020041570

PATIENT
  Age: 59 Year
  Sex: Female

DRUGS (1)
  1. ARTHROTEC [Suspect]
     Active Substance: DICLOFENAC SODIUM\MISOPROSTOL
     Indication: FIBROMYALGIA
     Dosage: 1 DF, 2X/DAY (75?0.2 MG)
     Route: 048

REACTIONS (3)
  - Product use in unapproved indication [Unknown]
  - Memory impairment [Unknown]
  - Off label use [Unknown]
